FAERS Safety Report 10966460 (Version 1)
Quarter: 2015Q1

REPORT INFORMATION
  Report Type: Spontaneous
  Country: JP (occurrence: JP)
  Receive Date: 20150330
  Receipt Date: 20150330
  Transmission Date: 20150721
  Serious: Yes (Hospitalization, Other)
  Sender: FDA-Public Use
  Company Number: JP-JNJFOC-20150316222

PATIENT

DRUGS (4)
  1. NEOPERIDOL [Suspect]
     Active Substance: HALOPERIDOL
     Indication: PRODUCT USED FOR UNKNOWN INDICATION
     Route: 030
  2. ABILIFY [Concomitant]
     Active Substance: ARIPIPRAZOLE
     Route: 048
  3. SERENACE [Concomitant]
     Active Substance: HALOPERIDOL
     Route: 065
  4. LONASEN [Concomitant]
     Active Substance: BLONANSERIN
     Route: 048

REACTIONS (4)
  - Feeding disorder [Recovered/Resolved]
  - Bedridden [Recovered/Resolved]
  - Dyspnoea [Recovered/Resolved]
  - Parkinsonism [Recovered/Resolved]
